FAERS Safety Report 21960417 (Version 1)
Quarter: 2023Q1

REPORT INFORMATION
  Report Type: Spontaneous
  Country: US (occurrence: US)
  Receive Date: 20230207
  Receipt Date: 20230207
  Transmission Date: 20230417
  Serious: No
  Sender: FDA-Public Use
  Company Number: US-APOTEX-2023AP002503

PATIENT
  Sex: Female

DRUGS (4)
  1. BRIMONIDINE TARTRATE [Suspect]
     Active Substance: BRIMONIDINE TARTRATE
     Indication: Glaucoma
     Dosage: 2 GTT DROPS, BID, (1 DROP IN BOTH EYES)
     Route: 047
  2. LATANOPROST [Concomitant]
     Active Substance: LATANOPROST
     Indication: Borderline glaucoma
     Dosage: 2 GTT DROPS, Q.H.S., (1 DROP IN BOTH EYES NIGHTLY)
     Route: 047
  3. CARVEDILOL [Concomitant]
     Active Substance: CARVEDILOL
     Indication: Product used for unknown indication
     Dosage: 1 DOSAGE FORM, BID
     Route: 065
  4. ATORVASTATIN [Concomitant]
     Active Substance: ATORVASTATIN
     Indication: Product used for unknown indication
     Dosage: 1 DOSAGE FORM, QD
     Route: 065

REACTIONS (5)
  - Product packaging difficult to open [Unknown]
  - Product dose omission issue [Unknown]
  - Product lot number issue [Unknown]
  - Product expiration date issue [Unknown]
  - No adverse event [Unknown]
